FAERS Safety Report 4410699-1 (Version None)
Quarter: 2004Q3

REPORT INFORMATION
  Report Type: 
  Country: None (occurrence: None)
  Receive Date: 20040728
  Receipt Date: 20040728
  Transmission Date: 20050211
  Serious: Yes (Death, Life-Threatening, Hospitalization)
  Sender: FDA-Public Use
  Company Number: None

PATIENT
  Age: 85 Year
  Sex: Male
  Weight: 76 kg

DRUGS (9)
  1. LIDOCAINE [Suspect]
     Indication: VENTRICULAR TACHYCARDIA
     Dosage: 1MG/KG ORDERED IV 100 MG GIVEN
     Route: 042
  2. HALDOL [Concomitant]
  3. BENADRYL [Concomitant]
  4. METOPROLOL [Concomitant]
  5. NITROPASTE [Concomitant]
  6. PROTONIX [Concomitant]
  7. ALBUTEROL/ATROVENT [Concomitant]
  8. LEVOFLOXACIN [Concomitant]
  9. CLINDA [Concomitant]

REACTIONS (6)
  - BRADYCARDIA [None]
  - CARDIAC ARREST [None]
  - COMA [None]
  - HYPOTENSION [None]
  - RESPIRATORY ARREST [None]
  - VENTRICULAR TACHYCARDIA [None]
